FAERS Safety Report 5570159-1 (Version None)
Quarter: 2007Q4

REPORT INFORMATION
  Report Type: 
  Country: None (occurrence: None)
  Receive Date: 20071220
  Receipt Date: 20071212
  Transmission Date: 20080405
  Serious: Yes (Disabling, Other)
  Sender: FDA-Public Use
  Company Number: FR-PFIZER INC-2007095783

PATIENT
  Sex: Female
  Weight: 59 kg

DRUGS (6)
  1. TAHOR [Suspect]
     Indication: MYOCARDIAL INFARCTION
     Route: 048
  2. BEPRIDIL [Concomitant]
     Route: 048
  3. IRBESARTAN [Concomitant]
     Route: 048
     Dates: start: 19970101
  4. L-LYSINE [Concomitant]
     Route: 048
     Dates: start: 19970101
  5. ESTRADIOL [Concomitant]
     Route: 062
     Dates: start: 19990101
  6. CHONDROITIN SULFATE SODIUM [Concomitant]
     Route: 048

REACTIONS (5)
  - ARTHRALGIA [None]
  - MYALGIA [None]
  - OEDEMA PERIPHERAL [None]
  - TENDON DISORDER [None]
  - TENDON INJURY [None]
